FAERS Safety Report 4393942-7 (Version None)
Quarter: 2004Q3

REPORT INFORMATION
  Report Type: 
  Country: None (occurrence: None)
  Receive Date: 20040702
  Receipt Date: 20040621
  Transmission Date: 20050211
  Serious: Yes (Death, Hospitalization)
  Sender: FDA-Public Use
  Company Number: 2004220491VE

PATIENT
  Age: 70 Year
  Sex: Female
  Weight: 57 kg

DRUGS (2)
  1. CELEBREX [Suspect]
     Indication: RHEUMATOID ARTHRITIS
     Dosage: 200 MG, BID,ORAL
     Route: 048
     Dates: start: 20031031, end: 20031201
  2. ATAMEL [Concomitant]

REACTIONS (3)
  - LUNG INFECTION [None]
  - RESPIRATORY ARREST [None]
  - RESPIRATORY FAILURE [None]
